FAERS Safety Report 6446230-9 (Version None)
Quarter: 2009Q4

REPORT INFORMATION
  Report Type: 
  Country: None (occurrence: None)
  Receive Date: 20091116
  Receipt Date: 20091110
  Transmission Date: 20100525
  Serious: Yes (Other)
  Sender: FDA-Public Use
  Company Number: WAES 0910USA04067

PATIENT
  Sex: Female

DRUGS (2)
  1. FOSAMAX [Suspect]
     Indication: OSTEOPOROSIS
     Dosage: 70 MG WKY PO
     Route: 048
  2. INJ TERIPARATIDE UNK [Suspect]
     Indication: OSTEOPOROSIS
     Dosage: 20 MICROGM DAILY SC
     Route: 058

REACTIONS (1)
  - HUMERUS FRACTURE [None]
